FAERS Safety Report 6180905-4 (Version None)
Quarter: 2009Q2

REPORT INFORMATION
  Report Type: 
  Country: None (occurrence: None)
  Receive Date: 20090430
  Receipt Date: 20090130
  Transmission Date: 20091009
  Serious: No
  Sender: FDA-Public Use
  Company Number: 276660

PATIENT
  Age: 79 Year
  Sex: Female

DRUGS (4)
  1. LUCENTIS [Suspect]
     Indication: MACULAR DEGENERATION
     Dosage: , INTRAVITREAL
  2. ANTIDEPRESSANTS [Concomitant]
  3. BLOOD PRESSURE MEDICATIONS NOS (ANTIHYPERTENSIVE NOS) [Concomitant]
  4. CHOLESTEROL LOWERING AGENTS (CHOLESTEROL LOWERING DRUG NOS) [Concomitant]

REACTIONS (1)
  - DRUG INEFFECTIVE [None]
